FAERS Safety Report 16278130 (Version 1)
Quarter: 2019Q2

REPORT INFORMATION
  Report Type: Spontaneous
  Country: FR (occurrence: FR)
  Receive Date: 20190506
  Receipt Date: 20190506
  Transmission Date: 20190711
  Serious: Yes (Hospitalization)
  Sender: FDA-Public Use
  Company Number: FR-MYLANLABS-2019M1042451

PATIENT
  Age: 80 Year
  Sex: Female
  Weight: 83 kg

DRUGS (9)
  1. METFORMIN [Suspect]
     Active Substance: METFORMIN HYDROCHLORIDE
     Indication: DIABETES MELLITUS
     Dosage: LE SOIR
     Route: 048
     Dates: end: 20181119
  2. NORMACOL [Suspect]
     Active Substance: HERBALS\KARAYA GUM
     Indication: CONSTIPATION
     Dosage: 1 SACHET 2 FOIS PAR JOUR
     Route: 048
     Dates: end: 20181119
  3. LAMALINE (ACETAMINOPHEN\CAFFEINE\OPIUM) [Suspect]
     Active Substance: ACETAMINOPHEN\CAFFEINE\OPIUM
     Indication: PAIN
     Dosage: SI BESOIN
     Route: 054
     Dates: end: 20181119
  4. DOMPERIDONE [Suspect]
     Active Substance: DOMPERIDONE
     Indication: PAIN
     Dosage: 1 CP 2 ? 3X/JOUR SI BESOIN
     Route: 048
     Dates: start: 20181112, end: 20181119
  5. SPASFON LYOC [Suspect]
     Active Substance: PHLOROGLUCINOL
     Indication: PAIN
     Dosage: 1 ? 3/JOUR SI BESOIN
     Route: 048
     Dates: start: 20181112, end: 20181119
  6. TAREG [Suspect]
     Active Substance: VALSARTAN
     Indication: HYPERTENSION
     Dosage: LE MATIN
     Route: 048
     Dates: end: 20181119
  7. ADANCOR [Suspect]
     Active Substance: NICORANDIL
     Indication: ANGINA PECTORIS
     Dosage: 40 MILLIGRAM, QD
     Route: 048
     Dates: end: 20181119
  8. DOLIPRANE [Suspect]
     Active Substance: ACETAMINOPHEN
     Indication: PAIN
     Dosage: 500 MG 2 CP MATIN ET SOIR
     Route: 048
     Dates: end: 20181119
  9. LIPTRUZET [Suspect]
     Active Substance: ATORVASTATIN CALCIUM\EZETIMIBE
     Indication: HYPERTENSION
     Dosage: 1 LE SOIR
     Route: 048
     Dates: end: 20181119

REACTIONS (2)
  - Cholestasis [Recovering/Resolving]
  - Cell death [Recovering/Resolving]

NARRATIVE: CASE EVENT DATE: 20181119
